FAERS Safety Report 19240256 (Version 1)
Quarter: 2021Q2

REPORT INFORMATION
  Report Type: Report from Study
  Country: CA (occurrence: CA)
  Receive Date: 20210511
  Receipt Date: 20210511
  Transmission Date: 20210717
  Serious: Yes (Other)
  Sender: FDA-Public Use
  Company Number: CA-OCTA-WIL02521CA

PATIENT
  Age: 82 Year
  Sex: Female

DRUGS (1)
  1. WILATE ? VON WILLEBRAND FACTOR/COAGULATION FACTOR VIII COMPLEX (HUMAN) [Suspect]
     Active Substance: HUMAN COAGULATION FACTOR VIII/VON WILLEBRAND FACTOR COMPLEX
     Indication: ACQUIRED VON WILLEBRAND^S DISEASE
     Route: 042
     Dates: start: 20210425, end: 20210425

REACTIONS (2)
  - Skin neoplasm excision [Unknown]
  - Wound haemorrhage [Recovered/Resolved]

NARRATIVE: CASE EVENT DATE: 20210426
